FAERS Safety Report 9791348 (Version 2)
Quarter: 2014Q1

REPORT INFORMATION
  Report Type: Report from Study
  Country: DE (occurrence: DE)
  Receive Date: 20140101
  Receipt Date: 20140101
  Transmission Date: 20141002
  Serious: Yes (Hospitalization)
  Sender: FDA-Public Use
  Company Number: DE-ROCHE-1311493

PATIENT
  Age: 51 Year
  Sex: Female
  Weight: 69 kg

DRUGS (2)
  1. TRASTUZUMAB [Suspect]
     Indication: LUNG NEOPLASM MALIGNANT
     Route: 042
     Dates: start: 20130521
  2. AUY922 [Suspect]
     Indication: LUNG NEOPLASM MALIGNANT
     Route: 042
     Dates: start: 20130826

REACTIONS (1)
  - Chest pain [Recovered/Resolved with Sequelae]
